FAERS Safety Report 14481332 (Version 1)
Quarter: 2018Q1

REPORT INFORMATION
  Report Type: Spontaneous
  Country: US (occurrence: US)
  Receive Date: 20180202
  Receipt Date: 20180202
  Transmission Date: 20180509
  Serious: Yes (Other)
  Sender: FDA-Public Use
  Company Number: US-009507513-1801USA010851

PATIENT
  Age: 68 Year
  Sex: Female

DRUGS (6)
  1. SIMVASTATIN TABLETS, USP [Concomitant]
     Active Substance: SIMVASTATIN
  2. RECLAST [Suspect]
     Active Substance: ZOLEDRONIC ACID
     Dosage: 2 OR 3 DOSES
     Dates: start: 201702
  3. PRINIVIL [Concomitant]
     Active Substance: LISINOPRIL
     Dosage: 10MG, ONCE DAILY
     Route: 048
  4. AUGMENTIN [Suspect]
     Active Substance: AMOXICILLIN\CLAVULANATE POTASSIUM
  5. OMEPRAZOLE. [Concomitant]
     Active Substance: OMEPRAZOLE
  6. FOSAMAX [Suspect]
     Active Substance: ALENDRONATE SODIUM
     Indication: OSTEOPOROSIS PROPHYLAXIS
     Dosage: UNK
     Route: 048
     Dates: start: 2008, end: 2013

REACTIONS (4)
  - Osteonecrosis of jaw [Not Recovered/Not Resolved]
  - Gingival disorder [Not Recovered/Not Resolved]
  - Adverse event [Not Recovered/Not Resolved]
  - Feeling abnormal [Not Recovered/Not Resolved]

NARRATIVE: CASE EVENT DATE: 201709
